FAERS Safety Report 25701347 (Version 1)
Quarter: 2025Q3

REPORT INFORMATION
  Report Type: Spontaneous
  Country: CA (occurrence: CA)
  Receive Date: 20250819
  Receipt Date: 20250819
  Transmission Date: 20251020
  Serious: Yes (Other)
  Sender: BRACCO
  Company Number: CA-BRACCO-2025CA05617

PATIENT
  Age: 22 Year
  Sex: Female

DRUGS (1)
  1. ISOVUE 300 [Suspect]
     Active Substance: IOPAMIDOL
     Indication: Computerised tomogram
     Route: 042

REACTIONS (3)
  - Cough [Unknown]
  - Dyspnoea [Unknown]
  - Eye irritation [Unknown]
